FAERS Safety Report 6399209-X (Version None)
Quarter: 2009Q4

REPORT INFORMATION
  Report Type: 
  Country: None (occurrence: None)
  Receive Date: 20091008
  Receipt Date: 20090930
  Transmission Date: 20100525
  Serious: Yes (Other)
  Sender: FDA-Public Use
  Company Number: A-US2009-27772

PATIENT
  Age: 66 Year

DRUGS (1)
  1. VENTAVIS [Suspect]
     Indication: RAYNAUD'S PHENOMENON
     Dosage: INTRAVENOUS
     Route: 042

REACTIONS (3)
  - CYANOSIS [None]
  - PURULENCE [None]
  - TOE AMPUTATION [None]
